FAERS Safety Report 4637202-5 (Version None)
Quarter: 2005Q2

REPORT INFORMATION
  Report Type: 
  Country: None (occurrence: None)
  Receive Date: 20050325
  Receipt Date: 20050118
  Transmission Date: 20051028
  Serious: No
  Sender: FDA-Public Use
  Company Number: USA041079851

PATIENT
  Age: 76 Year
  Sex: Female
  Weight: 41 kg

DRUGS (3)
  1. FORTEO [Suspect]
     Indication: BONE DISORDER
     Dosage: 20 UG/1 DAY
     Dates: start: 20040801, end: 20041229
  2. EVISTA [Suspect]
     Indication: BONE DISORDER
     Dosage: 60 MG/ 1 EVERY OTHER DAY
     Dates: start: 20020801, end: 20040801
  3. FOSAMAX [Concomitant]

REACTIONS (4)
  - DRUG INEFFECTIVE [None]
  - INJECTION SITE HAEMORRHAGE [None]
  - INJECTION SITE PAIN [None]
  - URINE CALCIUM INCREASED [None]
